FAERS Safety Report 8694175 (Version 3)
Quarter: 2012Q4

REPORT INFORMATION
  Report Type: Report from Study
  Country: CA (occurrence: CA)
  Receive Date: 20120731
  Receipt Date: 20121127
  Transmission Date: 20130627
  Serious: Yes (Hospitalization, Other)
  Sender: FDA-Public Use
  Company Number: CA-ABBOTT-12P-028-0962020-00

PATIENT
  Age: 24 Year
  Sex: Male

DRUGS (7)
  1. EPIVAL [Suspect]
     Indication: SCHIZOPHRENIA
     Route: 065
  2. CLOZARIL [Suspect]
     Indication: SCHIZOPHRENIA
     Route: 048
     Dates: start: 20100211, end: 20120819
  3. ANTIPSYCHOTICS [Concomitant]
     Indication: PRODUCT USED FOR UNKNOWN INDICATION
  4. ATROPINE SULFATE [Concomitant]
     Indication: PRODUCT USED FOR UNKNOWN INDICATION
  5. DIVALPROEX SODIUM [Concomitant]
     Indication: PRODUCT USED FOR UNKNOWN INDICATION
  6. FOLIC ACID [Concomitant]
     Indication: PRODUCT USED FOR UNKNOWN INDICATION
  7. RISPERDAL [Concomitant]

REACTIONS (5)
  - Antipsychotic drug level above therapeutic [Unknown]
  - Diarrhoea [Recovered/Resolved]
  - Dysarthria [Recovered/Resolved]
  - Sedation [Unknown]
  - Toxicity to various agents [Unknown]
